FAERS Safety Report 7527805-2 (Version None)
Quarter: 2011Q2

REPORT INFORMATION
  Report Type: 
  Country: None (occurrence: None)
  Receive Date: 20110607
  Receipt Date: 20110602
  Transmission Date: 20111010
  Serious: Yes (Hospitalization, Other)
  Sender: FDA-Public Use
  Company Number: US-PFIZER INC-2011120832

PATIENT

DRUGS (1)
  1. CHANTIX [Suspect]
     Dosage: UNK
     Route: 048

REACTIONS (5)
  - BLOOD POTASSIUM DECREASED [None]
  - MALAISE [None]
  - HYPONATRAEMIA [None]
  - NAUSEA [None]
  - DEHYDRATION [None]
